FAERS Safety Report 8621590-9 (Version None)
Quarter: 2012Q3

REPORT INFORMATION
  Report Type: 
  Country: None (occurrence: None)
  Receive Date: 20120820
  Receipt Date: 20120820
  Transmission Date: 20120928
  Serious: No
  Sender: FDA-Public Use
  Company Number: None

PATIENT
  Age: 55 Year
  Sex: Male
  Weight: 83.0083 kg

DRUGS (1)
  1. CELESTONE [Suspect]
     Indication: ROTATOR CUFF SYNDROME
     Dosage: 2CC, 1, IM
     Route: 030
     Dates: start: 20120815, end: 20120815

REACTIONS (1)
  - HICCUPS [None]
